FAERS Safety Report 22359469 (Version 1)
Quarter: 2023Q2

REPORT INFORMATION
  Report Type: Spontaneous
  Country: US (occurrence: US)
  Receive Date: 20230524
  Receipt Date: 20230524
  Transmission Date: 20230722
  Serious: No
  Sender: FDA-Public Use
  Company Number: US-ADVANZ PHARMA-202305003832

PATIENT

DRUGS (1)
  1. HYDROXYCHLOROQUINE [Suspect]
     Active Substance: HYDROXYCHLOROQUINE
     Dosage: UNK, PLAQUENIL

REACTIONS (2)
  - Drug hypersensitivity [Unknown]
  - Visual impairment [Unknown]
